FAERS Safety Report 10010200 (Version 1)
Quarter: 2014Q1

REPORT INFORMATION
  Report Type: Spontaneous
  Country: US (occurrence: US)
  Receive Date: 20140312
  Receipt Date: 20140312
  Transmission Date: 20141002
  Serious: No
  Sender: FDA-Public Use
  Company Number: US-INCYTE CORPORATION-2013IN001581

PATIENT
  Age: 52 Year
  Sex: Female

DRUGS (7)
  1. JAKAFI [Suspect]
     Indication: MYELOFIBROSIS
     Dosage: 10 MG, BID
     Route: 048
     Dates: start: 201212
  2. DETROL [Concomitant]
  3. EFFEXOR [Concomitant]
  4. PROTONIX [Concomitant]
  5. RECLAST [Concomitant]
  6. XANAX [Concomitant]
  7. NORCO [Concomitant]

REACTIONS (1)
  - Rash pruritic [Unknown]
